FAERS Safety Report 8258625-1 (Version None)
Quarter: 2012Q2

REPORT INFORMATION
  Report Type: 
  Country: None (occurrence: None)
  Receive Date: 20120404
  Receipt Date: 20120327
  Transmission Date: 20120825
  Serious: Yes (Hospitalization)
  Sender: FDA-Public Use
  Company Number: IT-BRISTOL-MYERS SQUIBB COMPANY-16483562

PATIENT
  Age: 68 Year
  Sex: Female

DRUGS (1)
  1. COUMADIN [Suspect]
     Route: 048
     Dates: start: 20111011, end: 20111111

REACTIONS (3)
  - HYPERHIDROSIS [None]
  - DIZZINESS [None]
  - PALLOR [None]
